FAERS Safety Report 11661812 (Version 1)
Quarter: 2015Q4

REPORT INFORMATION
  Report Type: Spontaneous
  Country: US (occurrence: US)
  Receive Date: 20151026
  Receipt Date: 20151026
  Transmission Date: 20160304
  Serious: No
  Sender: FDA-Public Use
  Company Number: US-UPSHER-SMITH LABORATORIES, INC.-15000832

PATIENT
  Sex: Male

DRUGS (4)
  1. MULTIVITAMIN [Concomitant]
     Active Substance: VITAMINS
     Dosage: UNK, UNK
  2. FLAXSEED [Concomitant]
     Active Substance: FLAX SEED
     Dosage: UNK, UNK
  3. FUROSEMIDE. [Concomitant]
     Active Substance: FUROSEMIDE
     Dosage: UNK, UNK
  4. KLOR-CON M [Suspect]
     Active Substance: POTASSIUM CHLORIDE
     Indication: BLOOD POTASSIUM DECREASED
     Dosage: 20 MEQ, BID
     Route: 048
     Dates: start: 201409

REACTIONS (3)
  - Throat tightness [Not Recovered/Not Resolved]
  - Productive cough [Not Recovered/Not Resolved]
  - Fructose intolerance [Not Recovered/Not Resolved]

NARRATIVE: CASE EVENT DATE: 2014
